FAERS Safety Report 18991840 (Version 1)
Quarter: 2021Q1

REPORT INFORMATION
  Report Type: Spontaneous
  Country: US (occurrence: US)
  Receive Date: 20210309
  Receipt Date: 20210309
  Transmission Date: 20210420
  Serious: No
  Sender: FDA-Public Use
  Company Number: None

PATIENT
  Age: 79 Year
  Sex: Male
  Weight: 81 kg

DRUGS (12)
  1. ALPRAZOLAM (0.5 MG TABLET) [Suspect]
     Active Substance: ALPRAZOLAM
     Indication: SLEEP DISORDER THERAPY
     Dosage: ?          QUANTITY:1 TABLET(S);?
     Route: 048
     Dates: start: 20201101, end: 20210304
  2. PENTASA [Concomitant]
     Active Substance: MESALAMINE
  3. ALBUTEROL INHALER [Concomitant]
     Active Substance: ALBUTEROL
  4. TORSEMIDE. [Concomitant]
     Active Substance: TORSEMIDE
  5. LOSARTAN. [Concomitant]
     Active Substance: LOSARTAN
  6. DILTIAZEM. [Concomitant]
     Active Substance: DILTIAZEM
  7. GLUCOSAMINE+MSN [Concomitant]
  8. VITAMIN D3 [Concomitant]
     Active Substance: CHOLECALCIFEROL
  9. PRAVASTATIN. [Concomitant]
     Active Substance: PRAVASTATIN
  10. DICYCLOMINE [Concomitant]
     Active Substance: DICYCLOMINE HYDROCHLORIDE
  11. FISH OIL [Concomitant]
     Active Substance: FISH OIL
  12. LEVOTHYROXINE. [Concomitant]
     Active Substance: LEVOTHYROXINE

REACTIONS (6)
  - Product formulation issue [None]
  - Product size issue [None]
  - Middle insomnia [None]
  - Product substitution issue [None]
  - Abdominal discomfort [None]
  - Headache [None]

NARRATIVE: CASE EVENT DATE: 20210309
